FAERS Safety Report 6177258-4 (Version None)
Quarter: 2009Q2

REPORT INFORMATION
  Report Type: 
  Country: None (occurrence: None)
  Receive Date: 20090504
  Receipt Date: 20090429
  Transmission Date: 20091009
  Serious: Yes (Death)
  Sender: FDA-Public Use
  Company Number: GT-ROCHE-630645

PATIENT
  Age: 69 Year
  Sex: Female

DRUGS (1)
  1. BONIVA [Suspect]
     Indication: BREAST CANCER
     Route: 048
     Dates: start: 20070403, end: 20090403

REACTIONS (1)
  - DEATH [None]
